FAERS Safety Report 9214288 (Version 2)
Quarter: 2013Q4

REPORT INFORMATION
  Report Type: Spontaneous
  Country: US (occurrence: US)
  Receive Date: 20130405
  Receipt Date: 20131220
  Transmission Date: 20140711
  Serious: Yes (Other)
  Sender: FDA-Public Use
  Company Number: US-BAYER-2013-040725

PATIENT
  Age: 23 Year
  Sex: Female

DRUGS (6)
  1. YAZ [Suspect]
     Dosage: UNK
     Dates: start: 200608
  2. YASMIN [Suspect]
     Dosage: UNK
     Dates: start: 200608
  3. METFORMIN [Concomitant]
     Dosage: 2000 MG, ONCE
  4. LORTAB [Concomitant]
  5. ZOFRAN [Concomitant]
  6. PHENTERMINE [Concomitant]

REACTIONS (5)
  - Gallbladder injury [None]
  - Pain [None]
  - Injury [None]
  - Fear of disease [None]
  - Cholecystitis chronic [None]
